FAERS Safety Report 9832773 (Version 1)
Quarter: 2014Q1

REPORT INFORMATION
  Report Type: Spontaneous
  Country: GB (occurrence: GB)
  Receive Date: 20140121
  Receipt Date: 20140121
  Transmission Date: 20141002
  Serious: Yes (Other)
  Sender: FDA-Public Use
  Company Number: GB-TEVA-455394ISR

PATIENT
  Age: 69 Year
  Sex: Male
  Weight: 77.4 kg

DRUGS (10)
  1. HALOPERIDOL [Suspect]
     Dates: start: 20131217
  2. ASPIRIN [Concomitant]
     Dates: start: 20130608
  3. AMITRIPTYLINE HYDROCHLORIDE [Concomitant]
     Dates: start: 20130912
  4. BENDROFLUMETHIAZIDE [Concomitant]
     Dates: start: 20130912
  5. PERINDOPRIL ERBUMINE [Concomitant]
     Dates: start: 20130912
  6. RABEPRAZOLE [Concomitant]
     Dates: start: 20130912
  7. SIMVASTATIN [Concomitant]
     Dates: start: 20130912
  8. LAXIDO [Concomitant]
     Dates: start: 20130903, end: 20131003
  9. DOMPERIDONE [Concomitant]
     Dates: start: 20131031, end: 20131130
  10. AMOXICILLIN [Concomitant]
     Dates: start: 20131219

REACTIONS (3)
  - Angioedema [Recovering/Resolving]
  - Lip swelling [Recovering/Resolving]
  - Swelling face [Recovering/Resolving]
